FAERS Safety Report 5783123-4 (Version None)
Quarter: 2008Q2

REPORT INFORMATION
  Report Type: 
  Country: None (occurrence: None)
  Receive Date: 20080624
  Receipt Date: 20080616
  Transmission Date: 20081010
  Serious: Yes (Death, Hospitalization)
  Sender: FDA-Public Use
  Company Number: JP-ROCHE-549162

PATIENT
  Sex: Female

DRUGS (23)
  1. DENOSINE IV [Suspect]
     Indication: CYTOMEGALOVIRUS INFECTION
     Route: 041
     Dates: start: 20011016, end: 20011018
  2. BAKTAR [Suspect]
     Route: 048
  3. BAKTAR [Suspect]
     Route: 048
  4. TRETINOIN [Suspect]
     Dosage: STARTED ON 10TH DAY OF THP-COP THERAPY.
     Route: 048
  5. MORPHINE HCL ELIXIR [Suspect]
     Indication: PAIN
     Dosage: DOSE: INCREASED GRADUALLY FROM 0.5ML/H.
     Route: 041
     Dates: start: 20010928
  6. PREDNISOLONE [Concomitant]
     Dosage: DRUG: ^PRENISOLONE (ADRENAL HORMONE PREPARATIONS)^ START DATE: END DEC 2000
     Route: 065
     Dates: start: 20001225
  7. PREDNISOLONE [Concomitant]
     Dosage: PART OF VEPA THERAPY. START DATE: BEGINNING OF AUGUST 2001.
     Route: 065
     Dates: start: 20010805
  8. PREDNISOLONE [Concomitant]
     Dosage: PART OF THP-COP THERAPY. START DATE: END OF AUGUST 2001.
     Route: 065
     Dates: start: 20010825
  9. GAMMA INTERFERON [Concomitant]
     Dosage: DRUG: ^GAMMA-INF (OTHER BIOLOGICAL PREPARATIONS)^ DAILY DOSE: ^2MIU 28 TIMES^
     Route: 030
     Dates: start: 20010201, end: 20010301
  10. CYCLOPHOSPHAMIDE [Concomitant]
     Dosage: START DATE: MID MARCH 2001. STOP DATE: END OF MARCH 2001.
     Route: 048
     Dates: start: 20010301, end: 20010325
  11. METHYLPREDNISOLONE [Concomitant]
     Dosage: MODIFIED PULSE THERAPY ^METHYLPREDNISOLONE (ADRENAL HORMONE PREPARATIONS)^ START:BEGINNING APR 2001
     Route: 065
     Dates: start: 20010405
  12. BISPHOSPHONATE [Concomitant]
     Indication: HYPERCALCAEMIA
     Route: 065
  13. ETOPOSIDE [Concomitant]
     Dosage: START DATE: BEGINNING OF JULY 2001.
     Route: 048
     Dates: start: 20010705
  14. VINCRISTINE SULFATE [Concomitant]
     Dosage: PART OF VEPA THERAPY. START DATE: BEGINNING OF AUGUST 2001.
     Route: 051
     Dates: start: 20010805
  15. CYCLOPHOSPHAMIDE [Concomitant]
     Dosage: PART OF VEPA THERAPY. START DATE: BEGINNING OF AUGUST 2001.
     Route: 051
     Dates: start: 20010805
  16. CYCLOPHOSPHAMIDE [Concomitant]
     Dosage: PART OF THP-COP THERAPY. START DATE: END OF AUGUST 2001.
     Route: 051
     Dates: start: 20010825
  17. DOXORUBICIN HYDROCHLORIDE [Concomitant]
     Dosage: PART OF VEPA THERAPY. START DATE: BEGINNING OF AUGUST 2001.
     Route: 051
     Dates: start: 20010805
  18. PIRARUBICIN HYDROCHLORIDE [Concomitant]
     Dosage: PART OF THP-COP THERAPY. START DATE: END OF AUGUST 2001.
     Route: 051
     Dates: start: 20010825
  19. ONCOVIN [Concomitant]
     Dosage: PART OF THP-COP THERAPY. START DATE: END OF AUGUST 2001.
     Route: 051
     Dates: start: 20010825
  20. NORPACE [Concomitant]
     Route: 048
     Dates: start: 20010923
  21. LANSOPRAZOLE [Concomitant]
     Route: 048
  22. ALLOPURINOL [Concomitant]
     Route: 048
  23. FUNGIZONE [Concomitant]
     Route: 048

REACTIONS (4)
  - ALTERED STATE OF CONSCIOUSNESS [None]
  - COMA [None]
  - CYTOMEGALOVIRUS INFECTION [None]
  - RENAL DISORDER [None]
